FAERS Safety Report 9290373 (Version 1)
Quarter: 2013Q2

REPORT INFORMATION
  Report Type: Spontaneous
  Country: US (occurrence: US)
  Receive Date: 20130515
  Receipt Date: 20130515
  Transmission Date: 20140414
  Serious: No
  Sender: FDA-Public Use
  Company Number: US-PFIZER INC-2013148375

PATIENT
  Age: 66 Year
  Sex: Male
  Weight: 86.2 kg

DRUGS (3)
  1. NEURONTIN [Suspect]
     Indication: HERPES ZOSTER
     Dosage: TWO 300MG CAPSULES IN MORNING, TWO 300MG CAPSULES IN AFTERNOON, THREE 300MG CAPSULES AT NIGHT
     Route: 048
  2. AMLODIPINE [Concomitant]
     Indication: HYPERTENSION
     Dosage: UNK
  3. LOSARTAN [Concomitant]
     Indication: HYPERTENSION
     Dosage: UNK

REACTIONS (2)
  - Feeling abnormal [Unknown]
  - Dizziness [Unknown]
